FAERS Safety Report 20991586 (Version 2)
Quarter: 2022Q3

REPORT INFORMATION
  Report Type: Report from Study
  Country: US (occurrence: US)
  Receive Date: 20220622
  Receipt Date: 20220826
  Transmission Date: 20221026
  Serious: Yes (Other)
  Sender: FDA-Public Use
  Company Number: US-NOVARTISPH-NVSC2022US139782

PATIENT
  Age: 16 Year
  Sex: Male

DRUGS (1)
  1. OMNITROPE [Suspect]
     Active Substance: SOMATROPIN
     Indication: Short stature
     Dosage: 0.4 ML, QD
     Route: 058
     Dates: start: 20220616

REACTIONS (3)
  - Loss of consciousness [Recovered/Resolved]
  - Dyskinesia [Unknown]
  - Dizziness [Unknown]

NARRATIVE: CASE EVENT DATE: 20220616
